FAERS Safety Report 6304262-5 (Version None)
Quarter: 2009Q3

REPORT INFORMATION
  Report Type: 
  Country: None (occurrence: None)
  Receive Date: 20090806
  Receipt Date: 20090723
  Transmission Date: 20100115
  Serious: Yes (Hospitalization, Other)
  Sender: FDA-Public Use
  Company Number: 1000007857

PATIENT
  Age: 37 Year
  Sex: Male

DRUGS (7)
  1. ESCITALOPRAM [Suspect]
     Indication: DEPRESSION
     Dosage: 10 MG (10 MG, 1 IN 1 D), ORAL
     Route: 048
  2. PLAVIX [Concomitant]
  3. EXETROL [Concomitant]
  4. NIASPAN [Concomitant]
  5. ALBY-E [Concomitant]
  6. LIPITOR [Concomitant]
  7. RAMIPRIL [Concomitant]

REACTIONS (5)
  - DIARRHOEA [None]
  - MYALGIA [None]
  - NAUSEA [None]
  - SALIVA DISCOLOURATION [None]
  - SALIVARY HYPERSECRETION [None]
